FAERS Safety Report 5247546-4 (Version None)
Quarter: 2007Q1

REPORT INFORMATION
  Report Type: 
  Country: None (occurrence: None)
  Receive Date: 20070227
  Receipt Date: 20070214
  Transmission Date: 20070707
  Serious: Yes (Hospitalization, Other)
  Sender: FDA-Public Use
  Company Number: PHBS2007JP02145

PATIENT
  Age: 5 Month
  Sex: Female
  Weight: 7 kg

DRUGS (2)
  1. TEGRETOL [Suspect]
     Indication: EPILEPSY
     Dosage: 50 MG/DAY
     Route: 048
     Dates: start: 20070105, end: 20070115
  2. TEGRETOL [Suspect]
     Dosage: 60 MG/DAY
     Route: 048
     Dates: start: 20070116, end: 20070119

REACTIONS (13)
  - ASPARTATE AMINOTRANSFERASE INCREASED [None]
  - BLOOD CREATINE PHOSPHOKINASE INCREASED [None]
  - ERYTHEMA [None]
  - HAEMATOCHEZIA [None]
  - HAEMATOCRIT DECREASED [None]
  - HAEMOGLOBIN DECREASED [None]
  - HAEMORRHAGE SUBCUTANEOUS [None]
  - LYMPHOCYTE COUNT INCREASED [None]
  - MEAN CELL HAEMOGLOBIN DECREASED [None]
  - MEAN CELL VOLUME DECREASED [None]
  - PLATELET COUNT DECREASED [None]
  - RASH [None]
  - THROMBOCYTOPENIA [None]
